FAERS Safety Report 9402072 (Version 1)
Quarter: 2013Q3

REPORT INFORMATION
  Report Type: Report from Study
  Country: BR (occurrence: BR)
  Receive Date: 20130716
  Receipt Date: 20130716
  Transmission Date: 20140515
  Serious: Yes (Other)
  Sender: FDA-Public Use
  Company Number: PHHY2013BR044857

PATIENT
  Sex: Female
  Weight: 70 kg

DRUGS (4)
  1. DIOVAN [Suspect]
     Indication: HYPERTENSION
     Dosage: 2 DF (160MG), DAILY
     Route: 048
  2. DIOVAN [Suspect]
     Dosage: 160 MG, QD
  3. CLOPIDOGREL [Concomitant]
     Indication: SPINAL COLUMN INJURY
     Dosage: 1 DF, DAILY
     Route: 048
  4. ROSUVASTATIN [Concomitant]
     Indication: BLOOD CHOLESTEROL INCREASED
     Dosage: 1 DF, DAILY
     Route: 048

REACTIONS (7)
  - Carotid artery occlusion [Recovered/Resolved]
  - Swelling face [Recovering/Resolving]
  - Musculoskeletal discomfort [Not Recovered/Not Resolved]
  - Influenza [Not Recovered/Not Resolved]
  - Cough [Recovering/Resolving]
  - Local swelling [Recovering/Resolving]
  - Hypersensitivity [Not Recovered/Not Resolved]
